FAERS Safety Report 14900784 (Version 1)
Quarter: 2018Q2

REPORT INFORMATION
  Report Type: Spontaneous
  Country: US (occurrence: US)
  Receive Date: 20180516
  Receipt Date: 20180516
  Transmission Date: 20180711
  Serious: Yes (Other)
  Sender: FDA-Public Use
  Company Number: US-EDENBRIDGE PHARMACEUTICALS, LLC-US-2018EDE000146

PATIENT
  Age: 4 Month
  Sex: Male

DRUGS (8)
  1. PROPRANOLOL [Suspect]
     Active Substance: PROPRANOLOL HYDROCHLORIDE
     Indication: INTRAVASCULAR PAPILLARY ENDOTHELIAL HYPERPLASIA
     Dosage: UNK
  2. SIROLIMUS. [Suspect]
     Active Substance: SIROLIMUS
     Indication: HAEMANGIOMA-THROMBOCYTOPENIA SYNDROME
  3. VINCRISTINE [Suspect]
     Active Substance: VINCRISTINE
     Indication: INTRAVASCULAR PAPILLARY ENDOTHELIAL HYPERPLASIA
     Dosage: 0.025 MG/KG, ONCE A WEEK
     Route: 042
  4. PREDNISOLONE SODIUM PHOSPHATE. [Suspect]
     Active Substance: PREDNISOLONE SODIUM PHOSPHATE
     Indication: HAEMANGIOMA-THROMBOCYTOPENIA SYNDROME
     Dosage: UNK
  5. PROPRANOLOL [Suspect]
     Active Substance: PROPRANOLOL HYDROCHLORIDE
     Indication: HAEMANGIOMA-THROMBOCYTOPENIA SYNDROME
     Dosage: 3 MG/KG, QD
  6. VINCRISTINE [Suspect]
     Active Substance: VINCRISTINE
     Indication: HAEMANGIOMA-THROMBOCYTOPENIA SYNDROME
  7. SIROLIMUS. [Suspect]
     Active Substance: SIROLIMUS
     Indication: INTRAVASCULAR PAPILLARY ENDOTHELIAL HYPERPLASIA
     Dosage: 0.05 MG/KG, BID
  8. PREDNISOLONE SODIUM PHOSPHATE. [Suspect]
     Active Substance: PREDNISOLONE SODIUM PHOSPHATE
     Indication: INTRAVASCULAR PAPILLARY ENDOTHELIAL HYPERPLASIA
     Dosage: 2 MG/KG, QD

REACTIONS (1)
  - Pneumocystis jirovecii pneumonia [Unknown]
